FAERS Safety Report 21352546 (Version 1)
Quarter: 2022Q3

REPORT INFORMATION
  Report Type: Spontaneous
  Country: US (occurrence: None)
  Receive Date: 20220920
  Receipt Date: 20220920
  Transmission Date: 20221027
  Serious: No
  Sender: FDA-Public Use
  Company Number: 2022A313811

PATIENT
  Sex: Female

DRUGS (1)
  1. LYNPARZA [Suspect]
     Active Substance: OLAPARIB
     Indication: Brain neoplasm malignant
     Dosage: 150.0MG UNKNOWN
     Route: 048
     Dates: start: 20220209

REACTIONS (1)
  - Full blood count abnormal [Unknown]
